FAERS Safety Report 7342112-9 (Version None)
Quarter: 2011Q1

REPORT INFORMATION
  Report Type: 
  Country: None (occurrence: None)
  Receive Date: 20110309
  Receipt Date: 20110228
  Transmission Date: 20110831
  Serious: Yes (Hospitalization, Other)
  Sender: FDA-Public Use
  Company Number: US-ASTRAZENECA-2010SE32432

PATIENT
  Age: 63 Year
  Sex: Female

DRUGS (2)
  1. NEXIUM [Suspect]
     Route: 048
  2. TOPROL-XL [Suspect]
     Route: 048

REACTIONS (10)
  - HIP ARTHROPLASTY [None]
  - BREAST RECONSTRUCTION [None]
  - ABDOMINAL DISCOMFORT [None]
  - NEOPLASM MALIGNANT [None]
  - THINKING ABNORMAL [None]
  - CEREBROVASCULAR ACCIDENT [None]
  - HEADACHE [None]
  - SPEECH DISORDER [None]
  - CHEST PAIN [None]
  - PAIN [None]
